FAERS Safety Report 7289980-7 (Version None)
Quarter: 2011Q1

REPORT INFORMATION
  Report Type: 
  Country: None (occurrence: None)
  Receive Date: 20110210
  Receipt Date: 20110210
  Transmission Date: 20110831
  Serious: Yes (Life-Threatening)
  Sender: FDA-Public Use
  Company Number: None

PATIENT
  Age: 21 Year
  Sex: Female
  Weight: 129.2752 kg

DRUGS (1)
  1. MORPHINE [Suspect]
     Indication: PAIN
     Dosage: 4MG ONCE IM
     Route: 030

REACTIONS (2)
  - MEDICATION ERROR [None]
  - CHEST PAIN [None]
